FAERS Safety Report 8549665-3 (Version None)
Quarter: 2012Q3

REPORT INFORMATION
  Report Type: 
  Country: None (occurrence: None)
  Receive Date: 20120730
  Receipt Date: 20120726
  Transmission Date: 20120928
  Serious: Yes (Death, Hospitalization, Other)
  Sender: FDA-Public Use
  Company Number: AT-ROCHE-1093058

PATIENT
  Sex: Male
  Weight: 94 kg

DRUGS (12)
  1. NEBIVOLOL [Concomitant]
     Indication: ATRIAL FIBRILLATION
     Dosage: 1/2 PER 1 DAY
     Dates: end: 20120205
  2. PREDNISOLONE [Concomitant]
     Indication: CHRONIC OBSTRUCTIVE PULMONARY DISEASE
     Dates: start: 20111020, end: 20120205
  3. FLUTICASONE PROPIONATE/SALMETEROL [Concomitant]
     Indication: CHRONIC OBSTRUCTIVE PULMONARY DISEASE
     Dates: start: 20111028
  4. COPEGUS [Suspect]
     Indication: HEPATITIS C
     Dates: start: 20111205, end: 20120205
  5. MARCUMAR [Concomitant]
     Indication: ATRIAL FIBRILLATION
     Dates: end: 20120205
  6. UROSIN [Concomitant]
     Indication: GOUT
     Dates: end: 20120205
  7. SPIRIVA [Concomitant]
     Indication: CHRONIC OBSTRUCTIVE PULMONARY DISEASE
     Dates: start: 20111028
  8. LASILACTONE [Concomitant]
     Indication: OEDEMA
     Dosage: 20/50 MG
     Dates: end: 20120205
  9. PANTOPRAZOLE SODIUM [Concomitant]
     Indication: GASTRIC ULCER
     Dates: start: 20111019
  10. TELAPREVIR [Suspect]
     Indication: HEPATITIS C
     Dates: start: 20111205, end: 20120205
  11. SEROQUEL [Concomitant]
     Indication: INSOMNIA
     Dates: start: 20111028
  12. PEGASYS [Suspect]
     Indication: HEPATITIS C
     Dates: start: 20111205, end: 20120205

REACTIONS (5)
  - ATRIAL FIBRILLATION [None]
  - NEPHROPATHY [None]
  - ARTHROPATHY [None]
  - MYOCARDIAL INFARCTION [None]
  - GOUT [None]
